FAERS Safety Report 13202201 (Version 4)
Quarter: 2017Q1

REPORT INFORMATION
  Report Type: Report from Study
  Country: US (occurrence: US)
  Receive Date: 20170209
  Receipt Date: 20170320
  Transmission Date: 20170428
  Serious: Yes (Hospitalization, Other)
  Sender: FDA-Public Use
  Company Number: US-GILEAD-2017-0256936

PATIENT
  Age: 63 Year
  Sex: Female
  Weight: 69 kg

DRUGS (16)
  1. LIDOCAIN                           /00033401/ [Concomitant]
     Active Substance: LIDOCAINE
  2. ONDANSETRON [Concomitant]
     Active Substance: ONDANSETRON
  3. METOPROLOL. [Concomitant]
     Active Substance: METOPROLOL
  4. VITAMIN B12 [Concomitant]
     Active Substance: CYANOCOBALAMIN
  5. FERROUS SULFATE. [Concomitant]
     Active Substance: FERROUS SULFATE
  6. MAGNESIUM OXIDE. [Concomitant]
     Active Substance: MAGNESIUM OXIDE
  7. ELIQUIS [Concomitant]
     Active Substance: APIXABAN
  8. VITAMIN D3 [Concomitant]
     Active Substance: CHOLECALCIFEROL
  9. REVATIO [Concomitant]
     Active Substance: SILDENAFIL CITRATE
  10. FOLIC ACID. [Concomitant]
     Active Substance: FOLIC ACID
  11. LIPODERM [Concomitant]
     Active Substance: BACLOFEN\CYCLOBENZAPRINE\DICLOFENAC\GABAPENTIN\TETRACAINE
  12. SILDENAFIL. [Concomitant]
     Active Substance: SILDENAFIL
  13. AMBRISENTAN [Suspect]
     Active Substance: AMBRISENTAN
     Indication: SCLERODERMA
  14. LORAZEPAM. [Concomitant]
     Active Substance: LORAZEPAM
  15. PANTOPRAZOLE [Concomitant]
     Active Substance: PANTOPRAZOLE SODIUM
  16. AMBRISENTAN [Suspect]
     Active Substance: AMBRISENTAN
     Indication: PULMONARY HYPERTENSION
     Dosage: 5 MG, QD
     Route: 048

REACTIONS (9)
  - Hypotension [Unknown]
  - Syncope [Unknown]
  - Hyponatraemia [Recovering/Resolving]
  - Renal impairment [Recovering/Resolving]
  - Deep vein thrombosis [Unknown]
  - Pulseless electrical activity [Unknown]
  - Gastrointestinal disorder [Recovering/Resolving]
  - Hyponatraemia [Unknown]
  - Anaemia [Recovering/Resolving]

NARRATIVE: CASE EVENT DATE: 20170217
